FAERS Safety Report 9198970 (Version 3)
Quarter: 2014Q2

REPORT INFORMATION
  Report Type: Spontaneous
  Country: IT (occurrence: IT)
  Receive Date: 20130329
  Receipt Date: 20140409
  Transmission Date: 20141212
  Serious: Yes (Hospitalization)
  Sender: FDA-Public Use
  Company Number: IT-009507513-1303ITA013583

PATIENT
  Age: 59 Year
  Sex: Male

DRUGS (2)
  1. CLARITYN [Suspect]
     Indication: URTICARIA
     Dosage: 10 MG, ONCE
     Route: 048
     Dates: start: 20121020, end: 20121020
  2. GAVISCON ADVANCE [Concomitant]
     Indication: ABDOMINAL PAIN UPPER
     Dosage: 1000 MG + 200 MG, 1 DOSE
     Route: 048
     Dates: start: 20121020, end: 20121020

REACTIONS (1)
  - Abdominal pain upper [Recovered/Resolved]
